FAERS Safety Report 8887219 (Version 2)
Quarter: 2012Q4

REPORT INFORMATION
  Report Type: 
  Country: GB (occurrence: GB)
  Receive Date: 20121101
  Receipt Date: 20121210
  Transmission Date: 20130627
  Serious: Yes (Other)
  Sender: FDA-Public Use
  Company Number: GB-ALLERGAN-1215078US

PATIENT
  Age: 29 Year

DRUGS (2)
  1. TROSPIUM CHLORIDE [Suspect]
     Indication: DRUG USE FOR UNKNOWN INDICATION
     Dosage: 20 mg, qd
     Dates: start: 201101
  2. REBIF [Suspect]
     Indication: MULTIPLE SCLEROSIS
     Dosage: 44 DF, UNK
     Dates: start: 201001

REACTIONS (4)
  - Abortion spontaneous [Unknown]
  - Pregnancy [Unknown]
  - Exposure via father [Unknown]
  - Exposure during pregnancy [None]
